FAERS Safety Report 10667486 (Version 2)
Quarter: 2014Q4

REPORT INFORMATION
  Report Type: Spontaneous
  Country: CA (occurrence: CA)
  Receive Date: 20141222
  Receipt Date: 20141222
  Transmission Date: 20150529
  Serious: Yes (Hospitalization)
  Sender: FDA-Public Use
  Company Number: CA-APOTEX-2014AP005672

PATIENT
  Age: 20 Year
  Sex: Male

DRUGS (4)
  1. PAXIL [Suspect]
     Active Substance: PAROXETINE HYDROCHLORIDE
     Indication: BIPOLAR I DISORDER
     Route: 065
  2. ATIVAN [Concomitant]
     Active Substance: LORAZEPAM
     Indication: PRODUCT USED FOR UNKNOWN INDICATION
     Dosage: UNK, PRN
     Route: 065
  3. APO-QUETIAPINE [Suspect]
     Active Substance: QUETIAPINE
     Indication: PRODUCT USED FOR UNKNOWN INDICATION
     Dosage: UNK
     Route: 065
  4. TEMAZEPAM. [Suspect]
     Active Substance: TEMAZEPAM
     Indication: BIPOLAR I DISORDER

REACTIONS (16)
  - Hallucination, auditory [Unknown]
  - Sexually transmitted disease [Unknown]
  - Anxiety [Unknown]
  - Trichotillomania [Unknown]
  - Psychotic disorder [Unknown]
  - Weight fluctuation [Unknown]
  - Borderline personality disorder [Unknown]
  - Depression [Unknown]
  - Erectile dysfunction [Unknown]
  - Fatigue [Unknown]
  - Homicide [Unknown]
  - Hair transplant [Unknown]
  - Increased appetite [Unknown]
  - Impulsive behaviour [Unknown]
  - Sleep disorder [Unknown]
  - Fear [Unknown]

NARRATIVE: CASE EVENT DATE: 2004
